FAERS Safety Report 16073977 (Version 2)
Quarter: 2019Q2

REPORT INFORMATION
  Report Type: Spontaneous
  Country: AR (occurrence: AR)
  Receive Date: 20190314
  Receipt Date: 20190610
  Transmission Date: 20190711
  Serious: Yes (Disabling, Other)
  Sender: FDA-Public Use
  Company Number: AR-009507513-1903ARG003496

PATIENT
  Age: 27 Year
  Sex: Male

DRUGS (4)
  1. FINASTERIDE. [Suspect]
     Active Substance: FINASTERIDE
     Dosage: 1MG/DAY
     Route: 048
     Dates: start: 2014, end: 201502
  2. FINASTERIDE. [Suspect]
     Active Substance: FINASTERIDE
     Dosage: 1MG/DAY
     Route: 048
     Dates: start: 2014, end: 2014
  3. FINASTERIDE. [Suspect]
     Active Substance: FINASTERIDE
     Indication: ANDROGENETIC ALOPECIA
     Dosage: 1MG/DAY
     Route: 048
     Dates: start: 201401, end: 201407
  4. FINASTERIDE. [Suspect]
     Active Substance: FINASTERIDE
     Dosage: 1MG/DAY
     Route: 048
     Dates: start: 201409, end: 2014

REACTIONS (14)
  - Penile pain [Recovering/Resolving]
  - Libido decreased [Recovering/Resolving]
  - Penile size reduced [Not Recovered/Not Resolved]
  - Asthenia [Recovered/Resolved]
  - Anxiety disorder [Not Recovered/Not Resolved]
  - Hypotonia [Recovering/Resolving]
  - Initial insomnia [Unknown]
  - Hypogonadism male [Recovering/Resolving]
  - Disturbance in attention [Unknown]
  - Erectile dysfunction [Not Recovered/Not Resolved]
  - Dyspepsia [Unknown]
  - Suicidal ideation [Not Recovered/Not Resolved]
  - Hypospermia [Recovering/Resolving]
  - Muscle atrophy [Recovering/Resolving]

NARRATIVE: CASE EVENT DATE: 2014
